FAERS Safety Report 4766173-6 (Version None)
Quarter: 2005Q3

REPORT INFORMATION
  Report Type: 
  Country: None (occurrence: None)
  Receive Date: 20050912
  Receipt Date: 20050408
  Transmission Date: 20060218
  Serious: Yes (Hospitalization, Disabling)
  Sender: FDA-Public Use
  Company Number: US-MERCK-0504USA01277

PATIENT
  Age: 56 Year
  Sex: Male
  Weight: 90 kg

DRUGS (3)
  1. VIOXX [Suspect]
     Indication: ARTHRALGIA
     Route: 048
     Dates: start: 20021203, end: 20030303
  2. ALBUTEROL [Concomitant]
     Route: 065
  3. LORTAB [Concomitant]
     Route: 065
     Dates: start: 20021203

REACTIONS (12)
  - CAROTID ARTERY OCCLUSION [None]
  - CEREBROVASCULAR ACCIDENT [None]
  - COLONIC POLYP [None]
  - COMPLEX REGIONAL PAIN SYNDROME [None]
  - COUGH [None]
  - DEPRESSION [None]
  - HAEMORRHOIDS [None]
  - HYPERLIPIDAEMIA [None]
  - HYPERTENSION [None]
  - PAIN [None]
  - TENOSYNOVITIS STENOSANS [None]
  - WHEEZING [None]
